FAERS Safety Report 19447494 (Version 1)
Quarter: 2021Q2

REPORT INFORMATION
  Report Type: Spontaneous
  Country: US (occurrence: US)
  Receive Date: 20210621
  Receipt Date: 20210621
  Transmission Date: 20210717
  Serious: Yes (Hospitalization)
  Sender: FDA-Public Use
  Company Number: None

PATIENT
  Sex: Female

DRUGS (12)
  1. SUTENT [Suspect]
     Active Substance: SUNITINIB MALATE
     Indication: METASTASES TO LIVER
     Route: 048
  2. AMLODIPINE [Concomitant]
     Active Substance: AMLODIPINE BESYLATE
  3. METFORMIN 500 MG TAB [Concomitant]
  4. LISINOPRIL 20 MG TAB [Concomitant]
  5. LOPERAMIDE 2 MG TAB [Concomitant]
  6. ONDANSETRON 4 MG TAB [Concomitant]
  7. SUTENT [Suspect]
     Active Substance: SUNITINIB MALATE
     Indication: BILE DUCT CANCER
     Route: 048
  8. ATORVASTATIN 40 MG TAB [Concomitant]
  9. ASPIRIN 81 MG TAB [Concomitant]
  10. PRILOSEC OTC [Concomitant]
     Active Substance: OMEPRAZOLE MAGNESIUM
  11. CLOPIDOGREL 75 MG TAB [Concomitant]
  12. CARVEDILOL 25 MG TAB [Concomitant]

REACTIONS (1)
  - Hospitalisation [None]
